FAERS Safety Report 11168066 (Version 1)
Quarter: 2015Q2

REPORT INFORMATION
  Report Type: Report from Study
  Country: US (occurrence: US)
  Receive Date: 20150605
  Receipt Date: 20150605
  Transmission Date: 20150821
  Serious: Yes (Other)
  Sender: FDA-Public Use
  Company Number: PHEH2015US005999

PATIENT
  Age: 39 Year
  Sex: Female
  Weight: 133 kg

DRUGS (1)
  1. GILENYA [Suspect]
     Active Substance: FINGOLIMOD HYDROCHLORIDE
     Indication: MULTIPLE SCLEROSIS
     Dosage: 0.5 MG, QD
     Route: 048
     Dates: start: 20150324

REACTIONS (5)
  - Electrocardiogram QT prolonged [Recovered/Resolved]
  - Sinus bradycardia [Unknown]
  - Multiple sclerosis relapse [Recovered/Resolved]
  - Blood pressure decreased [Unknown]
  - Gait disturbance [Recovered/Resolved]

NARRATIVE: CASE EVENT DATE: 20150324
